FAERS Safety Report 7985130-X (Version None)
Quarter: 2011Q4

REPORT INFORMATION
  Report Type: 
  Country: None (occurrence: None)
  Receive Date: 20111216
  Receipt Date: 20111206
  Transmission Date: 20120403
  Serious: Yes (Other)
  Sender: FDA-Public Use
  Company Number: PHHY2009JP15349

PATIENT
  Sex: Male
  Weight: 67 kg

DRUGS (3)
  1. WARFARIN SODIUM [Concomitant]
     Dosage: 3.5 MG, UNK
     Route: 048
  2. VALSARTAN [Suspect]
     Indication: HYPERTENSION
     Dosage: 400 MG, QD
     Route: 048
     Dates: start: 20071207
  3. WARFARIN SODIUM [Concomitant]
     Dosage: 4 MG, UNK
     Route: 048
     Dates: start: 20030514

REACTIONS (2)
  - GLUCOSE URINE PRESENT [None]
  - BLOOD GLUCOSE INCREASED [None]
